FAERS Safety Report 12945110 (Version 1)
Quarter: 2016Q4

REPORT INFORMATION
  Report Type: Not Available
  Country: FR (occurrence: FR)
  Receive Date: 20161115
  Receipt Date: 20161115
  Transmission Date: 20170207
  Serious: Yes (Death, Life-Threatening, Hospitalization)
  Sender: FDA-Public Use
  Company Number: FR-PURDUE PHARMA-GBR-2016-0041676

PATIENT
  Age: 63 Year
  Sex: Male

DRUGS (8)
  1. ZOPHREN                            /00955301/ [Concomitant]
     Active Substance: ONDANSETRON
  2. OXYNORMORO [Suspect]
     Active Substance: OXYCODONE
     Indication: PRODUCT USED FOR UNKNOWN INDICATION
     Dosage: 10 MG, BID
     Route: 048
     Dates: start: 20160602, end: 20160613
  3. DABRAFENIB [Concomitant]
     Active Substance: DABRAFENIB
  4. OXYCONTIN [Suspect]
     Active Substance: OXYCODONE HYDROCHLORIDE
     Dosage: 20MG MORNING AND EVENING
     Route: 048
     Dates: start: 20160602, end: 20160602
  5. PRIMPERAN [Concomitant]
     Active Substance: METOCLOPRAMIDE HYDROCHLORIDE
  6. TRAMETINIB [Concomitant]
     Active Substance: TRAMETINIB
  7. HYPNOVEL                           /00634103/ [Concomitant]
     Active Substance: MIDAZOLAM\MIDAZOLAM HYDROCHLORIDE
     Dosage: UNK
     Dates: start: 20160614
  8. OXYCONTIN [Suspect]
     Active Substance: OXYCODONE HYDROCHLORIDE
     Indication: PRODUCT USED FOR UNKNOWN INDICATION
     Dosage: 50 MG, BID
     Route: 048
     Dates: start: 20160603, end: 20160613

REACTIONS (6)
  - Constipation [Unknown]
  - Miosis [Recovered/Resolved]
  - Respiratory rate decreased [Recovered/Resolved]
  - Somnolence [Unknown]
  - Overdose [Recovered/Resolved]
  - Disease progression [Fatal]

NARRATIVE: CASE EVENT DATE: 20160603
